FAERS Safety Report 4784384-0 (Version None)
Quarter: 2005Q3

REPORT INFORMATION
  Report Type: 
  Country: None (occurrence: None)
  Receive Date: 20050929
  Receipt Date: 20050929
  Transmission Date: 20060218
  Serious: Yes (Life-Threatening, Hospitalization, Other)
  Sender: FDA-Public Use
  Company Number: None

PATIENT
  Age: 37 Year
  Sex: Female
  Weight: 68.0396 kg

DRUGS (2)
  1. ORTHO EVRA [Suspect]
     Indication: CONTRACEPTION
     Dosage: 3 PATCHES MONTH TRANSDERMAL
     Route: 062
     Dates: start: 20030101, end: 20050921
  2. IMITREX [Concomitant]

REACTIONS (1)
  - PULMONARY EMBOLISM [None]
